FAERS Safety Report 23731183 (Version 4)
Quarter: 2025Q1

REPORT INFORMATION
  Report Type: Report from Study
  Country: TH (occurrence: TH)
  Receive Date: 20240411
  Receipt Date: 20250131
  Transmission Date: 20250409
  Serious: Yes (Other)
  Sender: TAKEDA
  Company Number: TH-TAKEDA-2024TUS032876

PATIENT
  Age: 50 Year
  Sex: Male

DRUGS (1)
  1. VEDOLIZUMAB [Suspect]
     Active Substance: VEDOLIZUMAB
     Indication: Colitis ulcerative
     Dates: start: 20230717, end: 20241128

REACTIONS (2)
  - Colitis ulcerative [Unknown]
  - COVID-19 [Unknown]

NARRATIVE: CASE EVENT DATE: 20240602
